FAERS Safety Report 14785309 (Version 1)
Quarter: 2018Q2

REPORT INFORMATION
  Report Type: Spontaneous
  Country: US (occurrence: US)
  Receive Date: 20180420
  Receipt Date: 20180420
  Transmission Date: 20180711
  Serious: No
  Sender: FDA-Public Use
  Company Number: US-DUCHESNAY INC.-2017US017608

PATIENT
  Age: 48 Year
  Sex: Female

DRUGS (2)
  1. OSPHENA [Suspect]
     Active Substance: OSPEMIFENE
     Indication: MICTURITION URGENCY
  2. OSPHENA [Suspect]
     Active Substance: OSPEMIFENE
     Indication: VULVOVAGINAL BURNING SENSATION
     Dosage: 60 MG, UNK
     Route: 048
     Dates: start: 20170507

REACTIONS (4)
  - Off label use [Unknown]
  - Drug effective for unapproved indication [Unknown]
  - No adverse event [Unknown]
  - Drug prescribing error [Unknown]
